FAERS Safety Report 9772902 (Version 1)
Quarter: 2013Q4

REPORT INFORMATION
  Report Type: Spontaneous
  Country: GB (occurrence: None)
  Receive Date: 20131217
  Receipt Date: 20131217
  Transmission Date: 20140711
  Serious: Yes (Other)
  Sender: FDA-Public Use
  Company Number: CL-542-2013

PATIENT
  Age: 76 Year
  Sex: Male

DRUGS (1)
  1. LEVOFLOXACIN [Suspect]
     Indication: PNEUMONIA ASPIRATION
     Dosage: AROUND 11 D
     Route: 048

REACTIONS (2)
  - Dermatitis [None]
  - Oedema peripheral [None]
